FAERS Safety Report 23338775 (Version 6)
Quarter: 2024Q3

REPORT INFORMATION
  Report Type: Spontaneous
  Country: US (occurrence: US)
  Receive Date: 20231226
  Receipt Date: 20240731
  Transmission Date: 20241017
  Serious: Yes (Hospitalization, Other)
  Sender: BRISTOL MYERS SQUIBB
  Company Number: US-BRISTOL-MYERS SQUIBB COMPANY-2023-186309

PATIENT
  Age: 81 Year
  Sex: Female

DRUGS (3)
  1. REVLIMID [Suspect]
     Active Substance: LENALIDOMIDE
     Indication: Plasma cell myeloma
     Dosage: TAKE 1 CAPSULE WHOLE BY MOUTH WITH WATER EVERY DAY FOR 14 DAYS ON WITH 7 DAY REST. DO NOT BREAK, CHE
     Route: 048
     Dates: end: 202312
  2. REVLIMID [Suspect]
     Active Substance: LENALIDOMIDE
     Dosage: TAKE 1 WHOLE CAPSULE BY MOUTH WITH WATER IN THE MORNING FOR 14 DAYS ON, 7 DAYSOFF. DO NOT BREAK, CHE
     Route: 048
  3. REVLIMID [Suspect]
     Active Substance: LENALIDOMIDE
     Dosage: TAKE 1 CAPSULE BY MOUTH EVERY MORNING FOR 14 DAYS ON, THEN 7 DAYS OFF FOR A 21 DAY
     Route: 048

REACTIONS (6)
  - Illness [Recovering/Resolving]
  - Off label use [Unknown]
  - Therapy interrupted [Unknown]
  - Insurance issue [Unknown]
  - Decreased appetite [Not Recovered/Not Resolved]
  - Product availability issue [Unknown]

NARRATIVE: CASE EVENT DATE: 20240724
